FAERS Safety Report 7477503-9 (Version None)
Quarter: 2011Q2

REPORT INFORMATION
  Report Type: 
  Country: None (occurrence: None)
  Receive Date: 20110506
  Receipt Date: 20110506
  Transmission Date: 20111010
  Serious: Yes (Death)
  Sender: FDA-Public Use
  Company Number: None

PATIENT
  Age: 2 Month
  Sex: Male
  Weight: 5.4432 kg

DRUGS (1)
  1. ALCOHOL PREP PADS [Suspect]
     Dosage: WIPED CORD EVERY CHANGE UNK

REACTIONS (1)
  - PRODUCT QUALITY ISSUE [None]
